FAERS Safety Report 17805343 (Version 3)
Quarter: 2020Q2

REPORT INFORMATION
  Report Type: Report from Study
  Country: US (occurrence: US)
  Receive Date: 20200519
  Receipt Date: 20200605
  Transmission Date: 20200714
  Serious: Yes (Hospitalization, Other)
  Sender: FDA-Public Use
  Company Number: US-BRISTOL-MYERS SQUIBB COMPANY-BMS-2020-038595

PATIENT
  Age: 58 Year
  Sex: Male
  Weight: 58.96 kg

DRUGS (2)
  1. NIVOLUMAB [Suspect]
     Active Substance: NIVOLUMAB
     Indication: MALIGNANT MELANOMA
     Dosage: 240 MILLIGRAM
     Route: 042
     Dates: start: 20190910, end: 20200225
  2. IPILIMUMAB [Suspect]
     Active Substance: IPILIMUMAB
     Indication: MALIGNANT MELANOMA
     Dosage: 70 MILLIGRAM
     Route: 042
     Dates: start: 20190910, end: 20200225

REACTIONS (1)
  - Polyarthritis [Recovered/Resolved]

NARRATIVE: CASE EVENT DATE: 20200430
